FAERS Safety Report 15735380 (Version 1)
Quarter: 2018Q4

REPORT INFORMATION
  Report Type: Spontaneous
  Country: US (occurrence: US)
  Receive Date: 20181217
  Receipt Date: 20181217
  Transmission Date: 20190205
  Serious: No
  Sender: FDA-Public Use
  Company Number: None

PATIENT
  Age: 72 Year
  Weight: 69.72 kg

DRUGS (2)
  1. PROTAMINE [Suspect]
     Active Substance: PROTAMINE
  2. PROTAMINE [Suspect]
     Active Substance: PROTAMINE
     Indication: HEPARIN NEUTRALISATION THERAPY
     Route: 042
     Dates: start: 20181205

REACTIONS (2)
  - Bruxism [None]
  - Tonic clonic movements [None]

NARRATIVE: CASE EVENT DATE: 20181205
